FAERS Safety Report 22400119 (Version 1)
Quarter: 2023Q2

REPORT INFORMATION
  Report Type: Spontaneous
  Country: US (occurrence: None)
  Receive Date: 20230601
  Receipt Date: 20230601
  Transmission Date: 20230722
  Serious: Yes (unspecified)
  Sender: FDA-Public Use
  Company Number: None

PATIENT
  Age: 29 Year
  Sex: Female
  Weight: 63.5 kg

DRUGS (1)
  1. DOTAREM [Suspect]
     Active Substance: GADOTERATE MEGLUMINE
     Indication: Contrast-enhanced magnetic resonance venography
     Dosage: FREQUENCY : DAILY;?
     Route: 042
     Dates: start: 20230411, end: 20230411

REACTIONS (5)
  - Vomiting [None]
  - Hyperhidrosis [None]
  - Dysphagia [None]
  - Throat irritation [None]
  - Contrast media reaction [None]

NARRATIVE: CASE EVENT DATE: 20230411
